FAERS Safety Report 17422501 (Version 3)
Quarter: 2020Q1

REPORT INFORMATION
  Report Type: Report from Study
  Country: US (occurrence: US)
  Receive Date: 20200215
  Receipt Date: 20200224
  Transmission Date: 20200409
  Serious: Yes (Other)
  Sender: FDA-Public Use
  Company Number: NVSC2020US036331

PATIENT
  Age: 72 Year
  Sex: Male
  Weight: 85.7 kg

DRUGS (4)
  1. LAMPRENE [Suspect]
     Active Substance: CLOFAZIMINE
     Indication: PERICARDIAL DISEASE
  2. FLOMAX [Concomitant]
     Active Substance: TAMSULOSIN HYDROCHLORIDE
     Indication: PRODUCT USED FOR UNKNOWN INDICATION
     Dosage: 0.4 MG
     Route: 065
     Dates: start: 20190724, end: 20191115
  3. LAMPRENE [Suspect]
     Active Substance: CLOFAZIMINE
     Indication: MYCOBACTERIUM ABSCESSUS INFECTION
     Dosage: 100 MG, QD
     Route: 048
     Dates: start: 20191003, end: 20191105
  4. HYDRALAZINE [Concomitant]
     Active Substance: HYDRALAZINE HYDROCHLORIDE
     Indication: PRODUCT USED FOR UNKNOWN INDICATION
     Route: 065

REACTIONS (5)
  - Pneumonia klebsiella [Unknown]
  - Urinary retention [Unknown]
  - Diarrhoea [Recovered/Resolved]
  - Chromaturia [Recovered/Resolved]
  - Culture urine positive [Unknown]

NARRATIVE: CASE EVENT DATE: 20191103
